FAERS Safety Report 6987056-7 (Version None)
Quarter: 2010Q3

REPORT INFORMATION
  Report Type: 
  Country: None (occurrence: None)
  Receive Date: 20100916
  Receipt Date: 20100906
  Transmission Date: 20110219
  Serious: Yes (Hospitalization)
  Sender: FDA-Public Use
  Company Number: US-TEVA-247619USA

PATIENT
  Age: 69 Year
  Sex: Female

DRUGS (1)
  1. ALENDRONAT SODIUM, TABLETS, 5MG, 10MG, 40MG, 35MG, 70MG [Suspect]

REACTIONS (5)
  - FALL [None]
  - FEMUR FRACTURE [None]
  - IMPAIRED HEALING [None]
  - LOW TURNOVER OSTEOPATHY [None]
  - STRESS FRACTURE [None]
